FAERS Safety Report 13737900 (Version 1)
Quarter: 2017Q3

REPORT INFORMATION
  Report Type: Spontaneous
  Country: US (occurrence: US)
  Receive Date: 20170710
  Receipt Date: 20170710
  Transmission Date: 20171127
  Serious: Yes (Other)
  Sender: FDA-Public Use
  Company Number: US-SAOL THERAPEUTICS-2016SAO00801

PATIENT
  Age: 51 Year
  Sex: Female

DRUGS (2)
  1. LIORESAL [Suspect]
     Active Substance: BACLOFEN
     Indication: MUSCLE SPASTICITY
     Dosage: 262 ?G, \DAY
     Dates: end: 2016
  2. LIORESAL [Suspect]
     Active Substance: BACLOFEN
     Indication: MULTIPLE SCLEROSIS
     Dosage: 185 ?G, \DAY
     Route: 037

REACTIONS (5)
  - Device alarm issue [Not Recovered/Not Resolved]
  - Device battery issue [Unknown]
  - Tremor [Unknown]
  - Hyperhidrosis [Unknown]
  - Drug withdrawal syndrome [Unknown]

NARRATIVE: CASE EVENT DATE: 2016
